FAERS Safety Report 9521245 (Version 2)
Quarter: 2013Q3

REPORT INFORMATION
  Report Type: Spontaneous
  Country: CO (occurrence: CO)
  Receive Date: 20130913
  Receipt Date: 20130925
  Transmission Date: 20140515
  Serious: Yes (Death)
  Sender: FDA-Public Use
  Company Number: CO-ALEXION PHARMACEUTICALS INC.-A201302222

PATIENT
  Age: 7 Month
  Sex: Female
  Weight: 6 kg

DRUGS (2)
  1. SOLIRIS 300MG [Suspect]
     Indication: HAEMOLYTIC URAEMIC SYNDROME
     Dosage: 300 MG, SINGLE
     Route: 042
     Dates: start: 20130823, end: 20130823
  2. SOLIRIS 300MG [Suspect]
     Dosage: 300 MG, SINGLE
     Route: 042
     Dates: start: 20130830, end: 20130830

REACTIONS (1)
  - Pulmonary alveolar haemorrhage [Fatal]
